FAERS Safety Report 5589593-9 (Version None)
Quarter: 2008Q1

REPORT INFORMATION
  Report Type: 
  Country: None (occurrence: None)
  Receive Date: 20080109
  Receipt Date: 20071224
  Transmission Date: 20080703
  Serious: Yes (Hospitalization)
  Sender: FDA-Public Use
  Company Number: 2007JP005766

PATIENT
  Age: 57 Year
  Sex: Female
  Weight: 49.8 kg

DRUGS (10)
  1. TACROLIMUS [Suspect]
     Indication: RHEUMATOID ARTHRITIS
     Dosage: 3 MG, ORAL
     Route: 048
     Dates: start: 20070521, end: 20071222
  2. RHEUMATREX [Concomitant]
  3. ETODOLAC [Concomitant]
  4. FOLIC ACID [Concomitant]
  5. OLMETEC (OLMESARTAN MEDOXOMIL) [Concomitant]
  6. GASTER [Concomitant]
  7. MARZULENE S (LEVOGLUTAMIDE, SODIUM GUALENATE) [Concomitant]
  8. SELBEX (TEPRENONE) [Concomitant]
  9. NORVASC [Concomitant]
  10. MOHRUS (KETOPROFEN) [Concomitant]

REACTIONS (4)
  - BLOOD PRESSURE INCREASED [None]
  - MUSCULAR WEAKNESS [None]
  - SUBARACHNOID HAEMORRHAGE [None]
  - VOMITING [None]
